FAERS Safety Report 5909168-9 (Version None)
Quarter: 2008Q4

REPORT INFORMATION
  Report Type: 
  Country: None (occurrence: None)
  Receive Date: 20081001
  Receipt Date: 20080917
  Transmission Date: 20090506
  Serious: Yes (Other)
  Sender: FDA-Public Use
  Company Number: 2008BI019897

PATIENT
  Age: 18 Year
  Sex: Female
  Weight: 57 kg

DRUGS (3)
  1. TYSABRI [Suspect]
     Indication: RELAPSING-REMITTING MULTIPLE SCLEROSIS
     Dosage: 300 MG; ; IV
     Route: 042
     Dates: start: 20080523, end: 20080624
  2. TYSABRI [Suspect]
  3. LIORESAL [Concomitant]

REACTIONS (5)
  - DRUG HYPERSENSITIVITY [None]
  - DYSPNOEA [None]
  - OXYGEN SATURATION ABNORMAL [None]
  - PRURITUS [None]
  - RASH ERYTHEMATOUS [None]
